FAERS Safety Report 20711913 (Version 3)
Quarter: 2022Q2

REPORT INFORMATION
  Report Type: Spontaneous
  Country: US (occurrence: US)
  Receive Date: 20220414
  Receipt Date: 20220617
  Transmission Date: 20220721
  Serious: No
  Sender: FDA-Public Use
  Company Number: US-PFIZER INC-202200063126

PATIENT
  Age: 62 Year
  Sex: Female

DRUGS (1)
  1. IBRANCE [Suspect]
     Active Substance: PALBOCICLIB
     Indication: Malignant nipple neoplasm female
     Dosage: 100 MG
     Dates: start: 20220117

REACTIONS (6)
  - Product dose omission in error [Not Recovered/Not Resolved]
  - Memory impairment [Not Recovered/Not Resolved]
  - White blood cell count decreased [Unknown]
  - Fatigue [Unknown]
  - Alopecia [Unknown]
  - Nerve injury [Unknown]

NARRATIVE: CASE EVENT DATE: 20220101
